FAERS Safety Report 4600802-2 (Version None)
Quarter: 2005Q1

REPORT INFORMATION
  Report Type: 
  Country: None (occurrence: None)
  Receive Date: 20050304
  Receipt Date: 20050217
  Transmission Date: 20050727
  Serious: Yes (Hospitalization)
  Sender: FDA-Public Use
  Company Number: 2004EU001886

PATIENT
  Age: 13 Year
  Sex: Male
  Weight: 42.3 kg

DRUGS (6)
  1. PROGRAF [Suspect]
     Indication: RENAL TRANSPLANT
     Dosage: SEE IMAGE
     Dates: start: 20031224, end: 20040927
  2. PROGRAF [Suspect]
     Indication: RENAL TRANSPLANT
     Dosage: SEE IMAGE
     Dates: start: 20040929
  3. JOSACINE (JOSAMYCIN) [Suspect]
     Indication: PHARYNGOLARYNGEAL PAIN
     Dosage: D, ORAL
     Route: 048
     Dates: start: 20040924, end: 20040926
  4. IMUREL [Concomitant]
  5. PREDNISONE TAB [Concomitant]
  6. ENALAPRIL MALEATE [Concomitant]

REACTIONS (7)
  - BLOOD CREATININE INCREASED [None]
  - DRUG INTERACTION [None]
  - DRUG LEVEL INCREASED [None]
  - HEADACHE [None]
  - MYALGIA [None]
  - PANCREATITIS [None]
  - RASH MACULAR [None]
